FAERS Safety Report 20343140 (Version 4)
Quarter: 2022Q1

REPORT INFORMATION
  Report Type: Report from Study
  Country: CL (occurrence: None)
  Receive Date: 20220117
  Receipt Date: 20220217
  Transmission Date: 20220424
  Serious: Yes (Hospitalization)
  Sender: FDA-Public Use
  Company Number: 2020SE51425

PATIENT
  Age: 11128 Day
  Sex: Female

DRUGS (32)
  1. DURVALUMAB [Suspect]
     Active Substance: DURVALUMAB
     Indication: Cervix carcinoma
     Route: 042
     Dates: start: 20200311, end: 20200311
  2. DURVALUMAB [Suspect]
     Active Substance: DURVALUMAB
     Indication: Cervix carcinoma
     Route: 042
     Dates: start: 20200618, end: 20200618
  3. DURVALUMAB [Suspect]
     Active Substance: DURVALUMAB
     Indication: Cervix carcinoma
     Route: 042
     Dates: start: 20200722, end: 20200722
  4. DURVALUMAB [Suspect]
     Active Substance: DURVALUMAB
     Indication: Cervix carcinoma
     Route: 042
     Dates: start: 20200818, end: 20200818
  5. DURVALUMAB [Suspect]
     Active Substance: DURVALUMAB
     Indication: Cervix carcinoma
     Route: 042
     Dates: start: 20200916, end: 20200916
  6. DURVALUMAB [Suspect]
     Active Substance: DURVALUMAB
     Indication: Cervix carcinoma
     Route: 042
     Dates: start: 20201112, end: 20201112
  7. DURVALUMAB [Suspect]
     Active Substance: DURVALUMAB
     Indication: Cervix carcinoma
     Route: 042
     Dates: start: 20201015, end: 20201015
  8. CISPLATIN [Suspect]
     Active Substance: CISPLATIN
     Indication: Cervix carcinoma
     Route: 042
     Dates: start: 20200311, end: 20200311
  9. CISPLATIN [Suspect]
     Active Substance: CISPLATIN
     Indication: Cervix carcinoma
     Route: 042
     Dates: start: 20200325, end: 20200325
  10. CISPLATIN [Suspect]
     Active Substance: CISPLATIN
     Indication: Cervix carcinoma
     Route: 042
     Dates: start: 20200401, end: 20200401
  11. VENLAFAXINE HYDROCHLORIDE [Concomitant]
     Active Substance: VENLAFAXINE HYDROCHLORIDE
     Indication: Depression
     Route: 048
     Dates: start: 201908
  12. VENLAFAXINE HYDROCHLORIDE [Concomitant]
     Active Substance: VENLAFAXINE HYDROCHLORIDE
     Indication: Depression
     Route: 048
     Dates: start: 201908
  13. QUETIAPINE [Concomitant]
     Active Substance: QUETIAPINE
     Indication: Depression
     Route: 048
     Dates: start: 201908
  14. ZOPLICONA [Concomitant]
     Indication: Depression
     Route: 048
     Dates: start: 201908
  15. CLONAZEPAM [Concomitant]
     Active Substance: CLONAZEPAM
     Indication: Depression
     Route: 048
     Dates: start: 202001
  16. ACETAMINOPHEN [Concomitant]
     Active Substance: ACETAMINOPHEN
     Indication: Pelvic pain
     Route: 048
     Dates: start: 20200225, end: 20200421
  17. THEOBROMA CACAO/CINNAMOMUM SPP. BARK/VITIS VINIFERA SEED/GAMMA-AMINOBU [Concomitant]
     Indication: Pelvic pain
     Dosage: 10.0 OTHER FOUR TIMES A DAY
     Route: 048
     Dates: start: 20200225, end: 20200421
  18. LACTULOSE [Concomitant]
     Active Substance: LACTULOSE
     Indication: Constipation
     Route: 048
     Dates: start: 20200225, end: 20200310
  19. APREPITANT [Concomitant]
     Active Substance: APREPITANT
     Indication: Nausea
     Route: 048
     Dates: start: 20200311, end: 20200311
  20. APREPITANT [Concomitant]
     Active Substance: APREPITANT
     Indication: Prophylaxis of nausea and vomiting
     Route: 048
     Dates: start: 20200311, end: 20200311
  21. APREPITANT [Concomitant]
     Active Substance: APREPITANT
     Indication: Nausea
     Route: 048
     Dates: start: 20200312, end: 20200313
  22. APREPITANT [Concomitant]
     Active Substance: APREPITANT
     Indication: Prophylaxis of nausea and vomiting
     Route: 048
     Dates: start: 20200312, end: 20200313
  23. APREPITANT [Concomitant]
     Active Substance: APREPITANT
     Indication: Nausea
     Route: 048
     Dates: start: 20200325, end: 20200327
  24. APREPITANT [Concomitant]
     Active Substance: APREPITANT
     Indication: Prophylaxis of nausea and vomiting
     Route: 048
     Dates: start: 20200325, end: 20200327
  25. APREPITANT [Concomitant]
     Active Substance: APREPITANT
     Indication: Nausea
     Route: 048
     Dates: start: 20200326, end: 20200327
  26. APREPITANT [Concomitant]
     Active Substance: APREPITANT
     Indication: Prophylaxis of nausea and vomiting
     Route: 048
     Dates: start: 20200326, end: 20200327
  27. DOMPERIDONE [Concomitant]
     Active Substance: DOMPERIDONE
     Indication: Prophylaxis of nausea and vomiting
     Route: 048
     Dates: start: 20200311
  28. LOPERAMIDE [Concomitant]
     Active Substance: LOPERAMIDE
     Indication: Diarrhoea
     Route: 048
     Dates: start: 20200311, end: 20200316
  29. LOPERAMIDE [Concomitant]
     Active Substance: LOPERAMIDE
     Indication: Diarrhoea
     Dosage: 2.0MG INTERMITTENT
     Route: 048
     Dates: start: 20200317, end: 20200326
  30. ONDANSETRON [Concomitant]
     Active Substance: ONDANSETRON
     Indication: Vomiting
     Dosage: 8.0MG AS REQUIRED
     Route: 048
     Dates: start: 20200326
  31. DEXAMETHASONE [Concomitant]
     Active Substance: DEXAMETHASONE
     Indication: Nausea
     Route: 048
     Dates: start: 20200326, end: 20200327
  32. LEVOTHYROXINE [Concomitant]
     Active Substance: LEVOTHYROXINE
     Dosage: 150 UG QD
     Route: 048
     Dates: start: 20201213

REACTIONS (1)
  - Radiation proctitis [Not Recovered/Not Resolved]

NARRATIVE: CASE EVENT DATE: 20200402
